FAERS Safety Report 6760890-4 (Version None)
Quarter: 2010Q2

REPORT INFORMATION
  Report Type: 
  Country: None (occurrence: None)
  Receive Date: 20100608
  Receipt Date: 20100518
  Transmission Date: 20101027
  Serious: Yes (Hospitalization, Other)
  Sender: FDA-Public Use
  Company Number: PL-ROCHE-707150

PATIENT
  Age: 31 Year
  Sex: Female

DRUGS (9)
  1. MYCOPHENOLATE MOFETIL [Suspect]
     Route: 065
  2. MYCOPHENOLATE MOFETIL [Suspect]
     Dosage: DOSAGE REDUCED.
     Route: 065
     Dates: end: 20040101
  3. PREDNISONE [Suspect]
     Route: 065
  4. CYCLOSPORINE [Suspect]
     Route: 065
  5. FUROSEMIDE [Concomitant]
  6. AMLOZEK [Concomitant]
  7. CALCIUM CARBONICUM [Concomitant]
  8. ACTRAPID HM [Concomitant]
     Dosage: TOTAL DOSE: 12 UNITS, DRUG: ACTRAPID HM INSULIN
  9. INSULATARD HM [Concomitant]
     Dosage: DOSE: APPROX. 14 UNITS

REACTIONS (6)
  - ANAEMIA [None]
  - DIARRHOEA [None]
  - DYSPEPSIA [None]
  - HYPERTENSION [None]
  - HYPOGLYCAEMIA [None]
  - TRANSPLANT FAILURE [None]
